FAERS Safety Report 19960228 (Version 1)
Quarter: 2021Q4

REPORT INFORMATION
  Report Type: Spontaneous
  Country: CN (occurrence: CN)
  Receive Date: 20211015
  Receipt Date: 20211015
  Transmission Date: 20220303
  Serious: Yes (Hospitalization)
  Sender: FDA-Public Use
  Company Number: CN-BAXTER-2021BAX026809

PATIENT
  Age: 52 Year
  Sex: Male
  Weight: 50 kg

DRUGS (9)
  1. CYCLOPHOSPHAMIDE [Suspect]
     Active Substance: CYCLOPHOSPHAMIDE
     Indication: Diffuse large B-cell lymphoma
     Dosage: DILUTED WITH 250ML NS
     Route: 041
     Dates: start: 20190829, end: 20190829
  2. SODIUM CHLORIDE [Suspect]
     Active Substance: SODIUM CHLORIDE
     Indication: Medication dilution
     Dosage: CYCLOPHOSPHAMIDE FOR INJECTION 1.1G + 0.9% SODIUM CHLORIDE INJECTION 250ML
     Route: 041
     Dates: start: 20190829, end: 20190829
  3. SODIUM CHLORIDE [Suspect]
     Active Substance: SODIUM CHLORIDE
     Dosage: RITUXIMAB INJECTION + 0.9% SODIUM CHLORIDE INJECTION 500ML
     Route: 041
     Dates: start: 20190829, end: 20190829
  4. SODIUM CHLORIDE [Suspect]
     Active Substance: SODIUM CHLORIDE
     Dosage: VINORELBINE TARTRATE INJECTION 37MG + 0.9% SODIUM CHLORIDE INJECTION 125ML
     Route: 041
     Dates: start: 20190829, end: 20190829
  5. DEXTROSE [Suspect]
     Active Substance: DEXTROSE
     Indication: Medication dilution
     Dosage: PIRARUBICIN HYDROCHLORIDE FOR INJECTION 75MG + 5% GLUCOSE INJECTION 500ML
     Route: 041
     Dates: start: 20190829, end: 20190829
  6. PIRARUBICIN HYDROCHLORIDE [Suspect]
     Active Substance: PIRARUBICIN HYDROCHLORIDE
     Indication: Diffuse large B-cell lymphoma
     Dosage: DILUTED WITH 500ML OF 5% GLUCOSE
     Route: 041
     Dates: start: 20190829, end: 20190829
  7. VINORELBINE TARTRATE [Suspect]
     Active Substance: VINORELBINE TARTRATE
     Indication: Diffuse large B-cell lymphoma
     Dosage: DILUTED WITH 125ML NS
     Route: 041
     Dates: start: 20190829, end: 20190829
  8. RITUXIMAB [Suspect]
     Active Substance: RITUXIMAB
     Indication: Diffuse large B-cell lymphoma
     Dosage: DILUTED WITH 500ML NS
     Route: 041
     Dates: start: 20190829, end: 20190829
  9. PREDNISONE ACETATE [Suspect]
     Active Substance: PREDNISONE ACETATE
     Indication: Diffuse large B-cell lymphoma
     Dosage: TABLET
     Route: 048
     Dates: start: 20190829, end: 20190902

REACTIONS (1)
  - Myelosuppression [Recovering/Resolving]

NARRATIVE: CASE EVENT DATE: 20190908
